FAERS Safety Report 4608611-5 (Version None)
Quarter: 2005Q1

REPORT INFORMATION
  Report Type: 
  Country: None (occurrence: None)
  Receive Date: 20050311
  Receipt Date: 20050228
  Transmission Date: 20050727
  Serious: Yes (Other)
  Sender: FDA-Public Use
  Company Number: CHNY2005DE00505

PATIENT
  Sex: Female

DRUGS (3)
  1. NICOTINE [Suspect]
     Indication: SMOKING CESSATION THERAPY
     Dosage: 14 MG, ONCE/SINGLE, TRANSDERMAL
     Route: 062
     Dates: start: 20050201
  2. NICOTINELL KAUGUMMI (NCH) (NICOTINE)  CHEWABLE GUM [Suspect]
     Indication: SMOKING CESSATION THERAPY
     Dosage: 2 MG, ONCE/SINGLE, CHEWED
  3. CORTISONE ACETATE [Concomitant]

REACTIONS (7)
  - BURNING SENSATION MUCOSAL [None]
  - DIZZINESS [None]
  - DRY MOUTH [None]
  - DYSGEUSIA [None]
  - DYSPNOEA [None]
  - ORAL MUCOSAL DISORDER [None]
  - TOOTH DISORDER [None]
